FAERS Safety Report 15412944 (Version 1)
Quarter: 2018Q3

REPORT INFORMATION
  Report Type: Spontaneous
  Country: US (occurrence: US)
  Receive Date: 20180921
  Receipt Date: 20180921
  Transmission Date: 20181010
  Serious: Yes (Other)
  Sender: FDA-Public Use
  Company Number: US-BIOCOMPATIBLES UK LTD-2018BTG01783

PATIENT
  Age: 33 Year
  Sex: Male

DRUGS (1)
  1. CROFAB [Suspect]
     Active Substance: CROTALIDAE POLYVALENT IMMUNE FAB (OVINE)
     Indication: SNAKE BITE
     Dosage: UNK
     Dates: start: 200308

REACTIONS (4)
  - Rhabdomyolysis [Unknown]
  - Respiratory distress [Unknown]
  - Agitation [Unknown]
  - Acute kidney injury [Unknown]

NARRATIVE: CASE EVENT DATE: 200308
